FAERS Safety Report 14758166 (Version 1)
Quarter: 2018Q2

REPORT INFORMATION
  Report Type: Report from Study
  Country: CO (occurrence: CO)
  Receive Date: 20180413
  Receipt Date: 20180413
  Transmission Date: 20180711
  Serious: Yes (Hospitalization)
  Sender: FDA-Public Use
  Company Number: PHHY2018CO055429

PATIENT
  Sex: Male
  Weight: 60 kg

DRUGS (3)
  1. XOLAIR [Suspect]
     Active Substance: OMALIZUMAB
     Indication: PRODUCT USED FOR UNKNOWN INDICATION
     Dosage: 150 MG, QMO (4 YEARS AGO)
     Route: 058
  2. NIMESULIDE [Concomitant]
     Active Substance: NIMESULIDE
     Indication: MIGRAINE
     Dosage: UNK UNK, PRN
     Route: 065
  3. FLUTICASONE+SALMETEROL [Suspect]
     Active Substance: FLUTICASONE PROPIONATE\SALMETEROL XINAFOATE
     Indication: ASTHMA
     Dosage: (SINCE THE PATIENT WAS 5 MONTHS OLD)
     Route: 065

REACTIONS (5)
  - Blood test abnormal [Recovered/Resolved]
  - Abdominal pain [Recovered/Resolved]
  - Malaise [Unknown]
  - Pyrexia [Recovered/Resolved]
  - Headache [Recovered/Resolved]
